FAERS Safety Report 17087244 (Version 1)
Quarter: 2019Q4

REPORT INFORMATION
  Report Type: Spontaneous
  Country: TR (occurrence: TR)
  Receive Date: 20191128
  Receipt Date: 20191128
  Transmission Date: 20200122
  Serious: Yes (Hospitalization)
  Sender: FDA-Public Use
  Company Number: TR-ALEMBIC PHARMACUETICALS LIMITED-2019SCAL000940

PATIENT

DRUGS (1)
  1. DARIFENACIN. [Suspect]
     Active Substance: DARIFENACIN
     Indication: URINARY INCONTINENCE
     Dosage: QD,  FOR THREE MONTHS

REACTIONS (5)
  - Oesophagitis [Recovered/Resolved]
  - Abdominal pain [Recovered/Resolved]
  - Vomiting [Recovered/Resolved]
  - Nausea [Recovered/Resolved]
  - Weight decreased [Unknown]
